FAERS Safety Report 18391300 (Version 1)
Quarter: 2020Q4

REPORT INFORMATION
  Report Type: Spontaneous
  Country: US (occurrence: US)
  Receive Date: 20201015
  Receipt Date: 20201015
  Transmission Date: 20210114
  Serious: No
  Sender: FDA-Public Use
  Company Number: None

PATIENT
  Age: 87 Year
  Sex: Female
  Weight: 80.1 kg

DRUGS (13)
  1. IRON [Concomitant]
     Active Substance: IRON
  2. SILVADENE [Concomitant]
     Active Substance: SILVER SULFADIAZINE
  3. HYDROCHLOROTHIAZIDE. [Concomitant]
     Active Substance: HYDROCHLOROTHIAZIDE
  4. POTASSIUM [Concomitant]
     Active Substance: POTASSIUM
  5. SIMVASTATIN. [Concomitant]
     Active Substance: SIMVASTATIN
  6. AMLODIPINE [Concomitant]
     Active Substance: AMLODIPINE BESYLATE
  7. ANASTRAZOLE [Concomitant]
     Active Substance: ANASTROZOLE
  8. FISH OIL +D3 [Concomitant]
  9. PROCHLORPERAZINE. [Concomitant]
     Active Substance: PROCHLORPERAZINE
  10. ONDANSETRON [Concomitant]
     Active Substance: ONDANSETRON
  11. MULTIVITAMIN [Concomitant]
     Active Substance: VITAMINS
  12. WARFARIN [Concomitant]
     Active Substance: WARFARIN
  13. IBRANCE [Suspect]
     Active Substance: PALBOCICLIB
     Indication: MALIGNANT NIPPLE NEOPLASM FEMALE
     Dosage: ?          OTHER FREQUENCY:QD FOR 21/28 DAYS;?
     Route: 048
     Dates: start: 20190424, end: 20201015

REACTIONS (1)
  - Disease progression [None]

NARRATIVE: CASE EVENT DATE: 20201015
